FAERS Safety Report 15879174 (Version 3)
Quarter: 2019Q1

REPORT INFORMATION
  Report Type: Spontaneous
  Country: CN (occurrence: CN)
  Receive Date: 20190128
  Receipt Date: 20190317
  Transmission Date: 20190417
  Serious: Yes (Death)
  Sender: FDA-Public Use
  Company Number: CN-ROCHE-2249402

PATIENT

DRUGS (6)
  1. ANTI-THYMOCYTE GLOBULIN (EQUINE) [Concomitant]
     Active Substance: EQUINE THYMOCYTE IMMUNE GLOBULIN
  2. TACROLIMUS. [Concomitant]
     Active Substance: TACROLIMUS
     Indication: POSTOPERATIVE CARE
  3. CELLCEPT [Suspect]
     Active Substance: MYCOPHENOLATE MOFETIL\MYCOPHENOLATE MOFETIL HYDROCHLORIDE
     Indication: POSTOPERATIVE CARE
     Route: 065
  4. GANCICLOVIR. [Concomitant]
     Active Substance: GANCICLOVIR
     Indication: INFECTION PROPHYLAXIS
     Dosage: 1500MG/D
     Route: 065
  5. CICLOSPORIN A [Concomitant]
     Active Substance: CYCLOSPORINE
     Indication: POSTOPERATIVE CARE
  6. SULFAMETHOXAZOLE/TRIMETHOPRIM [Concomitant]
     Active Substance: SULFAMETHOXAZOLE\TRIMETHOPRIM
     Indication: INFECTION PROPHYLAXIS
     Dosage: FOR 8 MONTHS
     Route: 065

REACTIONS (3)
  - Lung infection [Fatal]
  - Respiratory failure [Fatal]
  - Abdominal infection [Fatal]
